FAERS Safety Report 10383521 (Version 1)
Quarter: 2014Q3

REPORT INFORMATION
  Report Type: Spontaneous
  Country: US (occurrence: US)
  Receive Date: 20140814
  Receipt Date: 20140814
  Transmission Date: 20150326
  Serious: Yes (Hospitalization)
  Sender: FDA-Public Use
  Company Number: US-BIOGENIDEC-2014BI079968

PATIENT
  Age: 54 Year
  Sex: Male

DRUGS (1)
  1. TYSABRI [Suspect]
     Active Substance: NATALIZUMAB
     Indication: MULTIPLE SCLEROSIS
     Route: 042
     Dates: start: 20130715

REACTIONS (9)
  - Faecaloma [Recovered/Resolved]
  - Hypokalaemia [Recovered/Resolved]
  - Sinusitis [Recovered/Resolved]
  - Enteritis infectious [Recovered/Resolved]
  - Dehydration [Recovered/Resolved]
  - Colectomy [Recovered/Resolved]
  - Electrolyte depletion [Recovered/Resolved]
  - Ileus paralytic [Recovered/Resolved]
  - Amnesia [Recovered/Resolved]

NARRATIVE: CASE EVENT DATE: 201312
